FAERS Safety Report 25841013 (Version 1)
Quarter: 2025Q3

REPORT INFORMATION
  Report Type: Other
  Country: JP (occurrence: JP)
  Receive Date: 20250924
  Receipt Date: 20250924
  Transmission Date: 20251021
  Serious: Yes (Hospitalization, Other)
  Sender: EMD SERONO INC
  Company Number: JP-Merck Healthcare KGaA-2025047404

PATIENT
  Age: 79 Year
  Sex: Female

DRUGS (1)
  1. BAVENCIO [Suspect]
     Active Substance: AVELUMAB
     Indication: Neuroendocrine carcinoma of the skin

REACTIONS (5)
  - Interstitial lung disease [Unknown]
  - Atelectasis [Unknown]
  - Dysphagia [Recovered/Resolved]
  - Tongue disorder [Unknown]
  - Immune-mediated myositis [Recovered/Resolved]
